FAERS Safety Report 7536596-0 (Version None)
Quarter: 2011Q2

REPORT INFORMATION
  Report Type: 
  Country: None (occurrence: None)
  Receive Date: 20110609
  Receipt Date: 20110602
  Transmission Date: 20111010
  Serious: Yes (Hospitalization, Other)
  Sender: FDA-Public Use
  Company Number: BR-PFIZER INC-2011039531

PATIENT
  Age: 50 Year
  Sex: Male
  Weight: 115 kg

DRUGS (13)
  1. LIPITOR [Suspect]
     Indication: BLOOD TRIGLYCERIDES INCREASED
     Dosage: 20 MG, 1X/DAY
     Route: 048
     Dates: start: 20060201, end: 20110218
  2. ATENOLOL [Concomitant]
     Indication: BLOOD PRESSURE INCREASED
     Dosage: 50 MG, 2X/DAY
  3. FUROSEMIDE [Concomitant]
     Indication: BLOOD PRESSURE INCREASED
     Dosage: 40 MG, 1X/DAY
  4. DOXAZOSIN MESILATE [Concomitant]
     Indication: PROSTATIC DISORDER
     Dosage: 4 MG, 1X/DAY
  5. CEDUR - SLOW RELEASE [Concomitant]
     Indication: BLOOD CHOLESTEROL
  6. FORMOTEROL FUMARATE [Concomitant]
     Indication: PULMONARY FIBROSIS
     Dosage: UNK
     Dates: start: 20090101
  7. LIPITOR [Suspect]
     Indication: BLOOD CHOLESTEROL INCREASED
  8. CAPTOPRIL [Concomitant]
     Indication: BLOOD PRESSURE INCREASED
     Dosage: UNK, 4X/DAY
  9. ASPIRIN [Concomitant]
     Indication: HYPERTENSION
     Dosage: UNK
  10. METFORMIN [Concomitant]
     Indication: DIABETES MELLITUS
     Dosage: 850 MG, 1X/DAY
     Dates: start: 20010101
  11. OMEPRAZOLE [Concomitant]
     Indication: GASTRITIS
     Dosage: UNK
  12. INSULIN [Concomitant]
     Indication: DIABETES MELLITUS
     Dosage: UNK
     Dates: start: 20080101
  13. CEDUR - SLOW RELEASE [Concomitant]
     Indication: BLOOD TRIGLYCERIDES INCREASED
     Dosage: 400 MG, UNK
     Dates: start: 20060101

REACTIONS (5)
  - INFARCTION [None]
  - HYPERGLYCAEMIA [None]
  - CORONARY ARTERY BYPASS [None]
  - BLOOD CREATINE PHOSPHOKINASE INCREASED [None]
  - PROSTATIC DISORDER [None]
